FAERS Safety Report 18410522 (Version 3)
Quarter: 2021Q2

REPORT INFORMATION
  Report Type: Spontaneous
  Country: US (occurrence: US)
  Receive Date: 20201021
  Receipt Date: 20210409
  Transmission Date: 20210717
  Serious: No
  Sender: FDA-Public Use
  Company Number: US-PFIZER INC-2020406223

PATIENT
  Age: 60 Year
  Sex: Female

DRUGS (1)
  1. XELJANZ XR [Suspect]
     Active Substance: TOFACITINIB CITRATE
     Indication: RHEUMATOID ARTHRITIS
     Dosage: 11 MG, DAILY
     Route: 048
     Dates: start: 20201101, end: 20210131

REACTIONS (5)
  - Discomfort [Unknown]
  - Drug ineffective [Unknown]
  - Memory impairment [Unknown]
  - Blood pressure increased [Unknown]
  - Malaise [Unknown]

NARRATIVE: CASE EVENT DATE: 2020
